FAERS Safety Report 4877191-1 (Version None)
Quarter: 2005Q4

REPORT INFORMATION
  Report Type: 
  Country: None (occurrence: None)
  Receive Date: 20051206
  Receipt Date: 20050930
  Transmission Date: 20060501
  Serious: No
  Sender: FDA-Public Use
  Company Number: USA0510109675

PATIENT
  Age: 44 Year
  Sex: Female

DRUGS (2)
  1. CYMBALTA [Suspect]
     Indication: PAIN MANAGEMENT
     Dosage: 60 MG
  2. ESTROGENS CONJUGATED W/MEDROXYPROGESTERONE [Concomitant]

REACTIONS (5)
  - ABDOMINAL DISTENSION [None]
  - DEPRESSION [None]
  - NEGATIVE THOUGHTS [None]
  - THINKING ABNORMAL [None]
  - WEIGHT INCREASED [None]
